FAERS Safety Report 21219156 (Version 1)
Quarter: 2022Q3

REPORT INFORMATION
  Report Type: Other
  Country: US (occurrence: None)
  Receive Date: 20220816
  Receipt Date: 20220816
  Transmission Date: 20221027
  Serious: No
  Sender: FDA-Public Use
  Company Number: US-ROCHE-3065785

PATIENT
  Age: 40 Year
  Sex: Female

DRUGS (5)
  1. PERTUZUMAB\TRASTUZUMAB [Suspect]
     Active Substance: PERTUZUMAB\TRASTUZUMAB
     Indication: HER2 positive breast cancer
     Route: 065
  2. DOXORUBICIN [Concomitant]
     Active Substance: DOXORUBICIN
  3. BLEOMYCIN [Concomitant]
     Active Substance: BLEOMYCIN SULFATE
  4. VINBLASTINE [Concomitant]
     Active Substance: VINBLASTINE
  5. DACARBAZINE [Concomitant]
     Active Substance: DACARBAZINE

REACTIONS (1)
  - Ejection fraction decreased [Unknown]
